FAERS Safety Report 16432842 (Version 1)
Quarter: 2019Q2

REPORT INFORMATION
  Report Type: Spontaneous
  Country: US (occurrence: US)
  Receive Date: 20190614
  Receipt Date: 20190614
  Transmission Date: 20190711
  Serious: Yes (Other)
  Sender: FDA-Public Use
  Company Number: US-JNJFOC-20190608435

PATIENT
  Sex: Male

DRUGS (1)
  1. RISPERDAL [Suspect]
     Active Substance: RISPERIDONE
     Indication: PRODUCT USED FOR UNKNOWN INDICATION
     Route: 048
     Dates: start: 19961214

REACTIONS (5)
  - Nipple disorder [Unknown]
  - Breast enlargement [Unknown]
  - Diabetes mellitus [Unknown]
  - Weight increased [Unknown]
  - Nipple pain [Unknown]

NARRATIVE: CASE EVENT DATE: 2001
